FAERS Safety Report 18016292 (Version 2)
Quarter: 2020Q3

REPORT INFORMATION
  Report Type: Spontaneous
  Country: US (occurrence: US)
  Receive Date: 20200713
  Receipt Date: 20200826
  Transmission Date: 20201103
  Serious: Yes (Hospitalization, Other)
  Sender: FDA-Public Use
  Company Number: US-PFIZER INC-2020261838

PATIENT
  Age: 77 Year
  Sex: Female
  Weight: 63.05 kg

DRUGS (9)
  1. ATENOLOL. [Concomitant]
     Active Substance: ATENOLOL
     Indication: BLOOD CHOLESTEROL ABNORMAL
     Dosage: 25 MG, 1X/DAY
     Route: 048
  2. MONTELUKAST [Concomitant]
     Active Substance: MONTELUKAST SODIUM
     Indication: PRODUCTIVE COUGH
  3. LASIX [Concomitant]
     Active Substance: FUROSEMIDE
     Indication: FLUID RETENTION
     Dosage: 20 MG, 1X/DAY
     Route: 048
     Dates: start: 202002
  4. XELJANZ XR [Suspect]
     Active Substance: TOFACITINIB CITRATE
     Dosage: 11 MG
  5. LEVOTHYROXINE. [Concomitant]
     Active Substance: LEVOTHYROXINE
     Indication: THYROID DISORDER
     Dosage: 0.075 MG, 1X/DAY
     Route: 048
  6. FLUOXETINE [Concomitant]
     Active Substance: FLUOXETINE HYDROCHLORIDE
     Indication: ANXIETY
     Dosage: 10 MG, 1X/DAY
     Route: 048
     Dates: start: 202002
  7. XELJANZ [Suspect]
     Active Substance: TOFACITINIB CITRATE
     Indication: PSORIATIC ARTHROPATHY
     Dosage: 5 MG, 2X/DAY (TAKING 5MG TWICE A DAY)
     Route: 048
     Dates: start: 202005
  8. XARELTO [Concomitant]
     Active Substance: RIVAROXABAN
     Indication: ANTICOAGULANT THERAPY
     Dosage: 20 MG, 1X/DAY
     Route: 048
  9. MONTELUKAST [Concomitant]
     Active Substance: MONTELUKAST SODIUM
     Indication: NASAL CONGESTION
     Dosage: 10 MG, 1X/DAY
     Route: 048

REACTIONS (4)
  - Cardiac failure [Unknown]
  - Liver disorder [Unknown]
  - Atrial fibrillation [Unknown]
  - Musculoskeletal stiffness [Unknown]

NARRATIVE: CASE EVENT DATE: 2015
